FAERS Safety Report 6250280-5 (Version None)
Quarter: 2009Q2

REPORT INFORMATION
  Report Type: 
  Country: None (occurrence: None)
  Receive Date: 20090625
  Receipt Date: 20090625
  Transmission Date: 20091009
  Serious: No
  Sender: FDA-Public Use
  Company Number: None

PATIENT

DRUGS (2)
  1. PULMICORT-100 [Suspect]
  2. MUCINEX D [Suspect]

REACTIONS (12)
  - ASTHMA [None]
  - CONDITION AGGRAVATED [None]
  - DIZZINESS [None]
  - DRUG EFFECT DECREASED [None]
  - ERYTHEMA [None]
  - FEAR [None]
  - INSOMNIA [None]
  - PRODUCT COUNTERFEIT [None]
  - PRODUCT QUALITY ISSUE [None]
  - PRURITUS [None]
  - SKIN IRRITATION [None]
  - URTICARIA [None]
